FAERS Safety Report 17851413 (Version 3)
Quarter: 2020Q3

REPORT INFORMATION
  Report Type: Spontaneous
  Country: ES (occurrence: ES)
  Receive Date: 20200602
  Receipt Date: 20200702
  Transmission Date: 20201103
  Serious: Yes (Hospitalization, Other)
  Sender: FDA-Public Use
  Company Number: ES-ROCHE-2605099

PATIENT
  Age: 24 Year
  Sex: Female

DRUGS (3)
  1. CITALOPRAM [Concomitant]
     Active Substance: CITALOPRAM HYDROBROMIDE
  2. OCRELIZUMAB. [Suspect]
     Active Substance: OCRELIZUMAB
     Indication: MULTIPLE SCLEROSIS RELAPSE
     Route: 065
     Dates: start: 20200304
  3. MIRTAZAPIN [Concomitant]
     Active Substance: MIRTAZAPINE

REACTIONS (2)
  - COVID-19 [Recovered/Resolved]
  - Suicidal ideation [Unknown]

NARRATIVE: CASE EVENT DATE: 20200329
